FAERS Safety Report 7359760-2 (Version None)
Quarter: 2011Q1

REPORT INFORMATION
  Report Type: 
  Country: None (occurrence: None)
  Receive Date: 20110317
  Receipt Date: 20110304
  Transmission Date: 20110831
  Serious: Yes (Life-Threatening, Hospitalization)
  Sender: FDA-Public Use
  Company Number: PT-GENENTECH-313824

PATIENT
  Sex: Male

DRUGS (3)
  1. MABTHERA [Suspect]
     Dosage: UNK
     Route: 042
     Dates: start: 20110208
  2. MABTHERA [Suspect]
     Indication: NON-HODGKIN'S LYMPHOMA
     Dosage: UNK
     Route: 042
  3. MABTHERA [Suspect]
     Dosage: 700 MG, Q3W
     Route: 042
     Dates: start: 20110208

REACTIONS (5)
  - DYSPNOEA [None]
  - OXYGEN SATURATION DECREASED [None]
  - NAUSEA [None]
  - PRODUCTIVE COUGH [None]
  - TREMOR [None]
